FAERS Safety Report 4896380-3 (Version None)
Quarter: 2006Q1

REPORT INFORMATION
  Report Type: 
  Country: None (occurrence: None)
  Receive Date: 20060126
  Receipt Date: 20060113
  Transmission Date: 20060701
  Serious: Yes (Other)
  Sender: FDA-Public Use
  Company Number: 2006008675

PATIENT
  Sex: Male

DRUGS (3)
  1. VIAGRA [Suspect]
     Indication: ILL-DEFINED DISORDER
     Dosage: 25 MG (25 MG, 1 AS NECESSARY), ORAL
     Route: 048
  2. METHOTREXATE [Concomitant]
  3. WARFARIN SODIUM [Concomitant]

REACTIONS (1)
  - BLINDNESS [None]
